FAERS Safety Report 8790583 (Version 1)
Quarter: 2012Q4

REPORT INFORMATION
  Report Type: Spontaneous
  Country: US (occurrence: None)
  Receive Date: 20120912
  Receipt Date: 20120912
  Transmission Date: 20130627
  Serious: Yes (Life-Threatening, Hospitalization)
  Sender: FDA-Public Use
  Company Number: None

PATIENT
  Age: 84 Year
  Sex: Male
  Weight: 131.54 kg

DRUGS (2)
  1. PRADAXA [Suspect]
     Indication: AFIB
     Dosage: by mount
     Route: 048
     Dates: end: 20111026
  2. PRADAXA [Suspect]
     Dosage: by mount
     Route: 048
     Dates: end: 20111026

REACTIONS (8)
  - Diarrhoea [None]
  - Haematochezia [None]
  - Loss of consciousness [None]
  - Confusional state [None]
  - Haemoglobin decreased [None]
  - Haemorrhage [None]
  - Asthenia [None]
  - Unevaluable event [None]
